FAERS Safety Report 8323191-9 (Version None)
Quarter: 2012Q2

REPORT INFORMATION
  Report Type: 
  Country: None (occurrence: None)
  Receive Date: 20120430
  Receipt Date: 20120423
  Transmission Date: 20120825
  Serious: Yes (Life-Threatening)
  Sender: FDA-Public Use
  Company Number: DE-TEVA-334677GER

PATIENT
  Age: 76 Year
  Sex: Male
  Weight: 72 kg

DRUGS (3)
  1. PREDNISOLONE [Suspect]
     Indication: RHEUMATOID ARTHRITIS
     Route: 048
     Dates: start: 19931201
  2. ENBREL [Suspect]
     Indication: RHEUMATOID ARTHRITIS
     Route: 058
     Dates: start: 20030320, end: 20090611
  3. ENBREL [Suspect]
     Route: 058
     Dates: start: 20090817, end: 20110919

REACTIONS (2)
  - SQUAMOUS CELL CARCINOMA [None]
  - METASTATIC BRONCHIAL CARCINOMA [None]
